FAERS Safety Report 8272101-1 (Version None)
Quarter: 2012Q2

REPORT INFORMATION
  Report Type: 
  Country: None (occurrence: None)
  Receive Date: 20120410
  Receipt Date: 20120404
  Transmission Date: 20120825
  Serious: Yes (Life-Threatening, Hospitalization, Other)
  Sender: FDA-Public Use
  Company Number: ZA-JNJFOC-20120309073

PATIENT
  Sex: Female

DRUGS (2)
  1. AZAPRESS [Concomitant]
     Indication: COLITIS ULCERATIVE
     Dosage: IMMUNOSUPPRESSANT FOR ULCERATIVE COLITIS
     Route: 065
     Dates: start: 20110219, end: 20120226
  2. REVELLEX [Suspect]
     Indication: COLITIS ULCERATIVE
     Route: 042
     Dates: start: 20110512, end: 20120202

REACTIONS (1)
  - TUBERCULOSIS [None]
